FAERS Safety Report 10889356 (Version 1)
Quarter: 2015Q1

REPORT INFORMATION
  Report Type: Spontaneous
  Country: NL (occurrence: NL)
  Receive Date: 20150305
  Receipt Date: 20150305
  Transmission Date: 20150721
  Serious: Yes (Other)
  Sender: FDA-Public Use
  Company Number: NL-BAUSCH-BL-2015-004211

PATIENT
  Age: 6 Decade
  Sex: Female

DRUGS (1)
  1. WELLBUTRIN XL [Suspect]
     Active Substance: BUPROPION HYDROCHLORIDE
     Indication: PRODUCT USED FOR UNKNOWN INDICATION
     Route: 065
     Dates: start: 20150115

REACTIONS (1)
  - Diabetes mellitus inadequate control [Unknown]

NARRATIVE: CASE EVENT DATE: 201501
